FAERS Safety Report 24238286 (Version 2)
Quarter: 2024Q3

REPORT INFORMATION
  Report Type: Spontaneous
  Country: US (occurrence: US)
  Receive Date: 20240822
  Receipt Date: 20240923
  Transmission Date: 20241017
  Serious: No
  Sender: PFIZER
  Company Number: US-PFIZER INC-202400240389

PATIENT
  Age: 71 Year
  Sex: Male

DRUGS (1)
  1. SOMAVERT [Suspect]
     Active Substance: PEGVISOMANT
     Dosage: 50 MG, DAILY (7DAYS/WEEK)

REACTIONS (2)
  - Laboratory test abnormal [Recovered/Resolved]
  - Off label use [Unknown]
